FAERS Safety Report 16457847 (Version 1)
Quarter: 2019Q2

REPORT INFORMATION
  Report Type: Spontaneous
  Country: US (occurrence: US)
  Receive Date: 20190620
  Receipt Date: 20190620
  Transmission Date: 20190711
  Serious: Yes (Death)
  Sender: FDA-Public Use
  Company Number: US-BAUSCH-BL-2019-016102

PATIENT
  Age: 74 Year
  Sex: Female

DRUGS (6)
  1. APRISO [Suspect]
     Active Substance: MESALAMINE
     Indication: COLITIS ULCERATIVE
     Route: 048
     Dates: start: 2018
  2. DICYCLOMINE [Suspect]
     Active Substance: DICYCLOMINE HYDROCHLORIDE
     Indication: PRODUCT USED FOR UNKNOWN INDICATION
     Route: 048
  3. AZATHIOPRINE. [Suspect]
     Active Substance: AZATHIOPRINE
     Indication: COLITIS ULCERATIVE
     Dosage: AS DIRECTED
     Route: 048
  4. APRISO [Suspect]
     Active Substance: MESALAMINE
     Dosage: LOWER HER DOSE.
     Route: 048
     Dates: end: 201905
  5. PREDNISONE. [Concomitant]
     Active Substance: PREDNISONE
     Indication: PRODUCT USED FOR UNKNOWN INDICATION
     Route: 048
  6. CANASA [Suspect]
     Active Substance: MESALAMINE
     Indication: PRODUCT USED FOR UNKNOWN INDICATION
     Dosage: RECTAL SUPPOSITORIES (AS DIRECTED)
     Route: 054

REACTIONS (3)
  - Vomiting [Unknown]
  - Pruritus [Unknown]
  - Therapeutic product effect incomplete [Unknown]
